FAERS Safety Report 6167983-3 (Version None)
Quarter: 2009Q2

REPORT INFORMATION
  Report Type: 
  Country: None (occurrence: None)
  Receive Date: 20090423
  Receipt Date: 20090423
  Transmission Date: 20091009
  Serious: Yes (Hospitalization)
  Sender: FDA-Public Use
  Company Number: None

PATIENT
  Sex: Female
  Weight: 70.5 kg

DRUGS (2)
  1. CLOFARABINE [Suspect]
     Indication: BONE MARROW CONDITIONING REGIMEN
     Dosage: 54MG DAILY IV DRIP
     Route: 041
     Dates: start: 20090414, end: 20090418
  2. CAMPATH [Suspect]
     Dosage: 20 MG DAILY IV DRIP
     Route: 041
     Dates: start: 20090414, end: 20090414

REACTIONS (2)
  - CONVULSION [None]
  - INFUSION RELATED REACTION [None]
